FAERS Safety Report 6079642-6 (Version None)
Quarter: 2009Q1

REPORT INFORMATION
  Report Type: 
  Country: None (occurrence: None)
  Receive Date: 20090211
  Receipt Date: 20090202
  Transmission Date: 20090719
  Serious: Yes (Hospitalization)
  Sender: FDA-Public Use
  Company Number: DSA_33112_2009

PATIENT
  Age: 38 Year
  Sex: Female

DRUGS (4)
  1. LORAZEPAM [Suspect]
     Dosage: 11 MG 1X, NOT THE PRESCRIBED AMOUNT ORAL
     Route: 048
     Dates: start: 20090116, end: 20090116
  2. ALCOHOL (ALCOHOL - ETHANOL) [Suspect]
     Dosage: 0.5 L OF WINE ORAL
     Route: 048
     Dates: start: 20090116, end: 20090116
  3. TRIMIPRAMINE MALEATE [Suspect]
     Dosage: 1X, NOT THE PRESCRIBED AMOUNT ORAL
     Route: 048
     Dates: start: 20090116, end: 20090116
  4. ZOPICLONE (ZOPICLONE) [Suspect]
     Dosage: 97.5 MG 1X, NO THE PRESCRIBED AMOUNT ORAL
     Route: 048
     Dates: start: 20090116, end: 20090116

REACTIONS (7)
  - COMA [None]
  - HYPERHIDROSIS [None]
  - MULTIPLE DRUG OVERDOSE INTENTIONAL [None]
  - PNEUMONIA [None]
  - RESPIRATORY FAILURE [None]
  - SUICIDE ATTEMPT [None]
  - TACHYCARDIA [None]
